FAERS Safety Report 21878788 (Version 1)
Quarter: 2023Q1

REPORT INFORMATION
  Report Type: Spontaneous
  Country: CN (occurrence: CN)
  Receive Date: 20230118
  Receipt Date: 20230118
  Transmission Date: 20230418
  Serious: Yes (Hospitalization, Other)
  Sender: FDA-Public Use
  Company Number: CN-PFIZER INC-PV202300008502

PATIENT
  Age: 89 Year
  Sex: Male

DRUGS (1)
  1. NIRMATRELVIR\RITONAVIR [Suspect]
     Active Substance: NIRMATRELVIR\RITONAVIR
     Indication: Pneumonia viral
     Dosage: 300 MG, 2X/DAY
     Route: 048
     Dates: start: 20230104, end: 20230107

REACTIONS (15)
  - Liver injury [Recovering/Resolving]
  - Renal impairment [Recovering/Resolving]
  - Hepatic function abnormal [Recovering/Resolving]
  - Electrolyte imbalance [Recovering/Resolving]
  - Oliguria [Recovering/Resolving]
  - Acid base balance abnormal [Recovering/Resolving]
  - Alanine aminotransferase increased [Recovering/Resolving]
  - Aspartate aminotransferase increased [Recovering/Resolving]
  - Blood albumin abnormal [Recovering/Resolving]
  - Blood creatine abnormal [Recovering/Resolving]
  - Blood urea abnormal [Recovering/Resolving]
  - Blood uric acid abnormal [Recovering/Resolving]
  - Transaminases abnormal [Recovering/Resolving]
  - Protein total decreased [Recovering/Resolving]
  - Off label use [Unknown]

NARRATIVE: CASE EVENT DATE: 20230104
